FAERS Safety Report 6564357-8 (Version None)
Quarter: 2010Q1

REPORT INFORMATION
  Report Type: 
  Country: None (occurrence: None)
  Receive Date: 20100201
  Receipt Date: 20090420
  Transmission Date: 20100710
  Serious: Yes (Disabling, Other)
  Sender: FDA-Public Use
  Company Number: US-JNJFOC-20080602907

PATIENT
  Sex: Female

DRUGS (3)
  1. LEVAQUIN [Suspect]
     Indication: SINUSITIS
     Route: 048
  2. LEVAQUIN [Suspect]
     Indication: BACTERIAL INFECTION
     Route: 048
  3. PREDNISONE [Suspect]
     Indication: SINUSITIS
     Route: 065

REACTIONS (3)
  - MENISCUS LESION [None]
  - TENDON INJURY [None]
  - TENDONITIS [None]
